FAERS Safety Report 14949477 (Version 1)
Quarter: 2018Q2

REPORT INFORMATION
  Report Type: Spontaneous
  Country: US (occurrence: US)
  Receive Date: 20180529
  Receipt Date: 20180529
  Transmission Date: 20180711
  Serious: No
  Sender: FDA-Public Use
  Company Number: US-BIODELIVERY SCIENCES INTERNATIONAL-2016BDSI0057

PATIENT

DRUGS (1)
  1. BUPRENORPHINE/NALOXONE [Suspect]
     Active Substance: BUPRENORPHINE\NALOXONE
     Indication: PRODUCT USED FOR UNKNOWN INDICATION
     Dosage: UNKNOWN, 2 TIMES
     Route: 002
     Dates: start: 201606, end: 201606

REACTIONS (2)
  - Dry mouth [Unknown]
  - Vomiting [Unknown]

NARRATIVE: CASE EVENT DATE: 201606
